APPROVED DRUG PRODUCT: CABOMETYX
Active Ingredient: CABOZANTINIB S-MALATE
Strength: EQ 40MG BASE
Dosage Form/Route: TABLET;ORAL
Application: N208692 | Product #002
Applicant: EXELIXIS INC
Approved: Apr 25, 2016 | RLD: Yes | RS: No | Type: RX

PATENTS:
Patent 10034873 | Expires: Jul 18, 2031
Patent 12128039 | Expires: Feb 10, 2032
Patent 12128039 | Expires: Feb 10, 2032
Patent 12128039 | Expires: Feb 10, 2032
Patent 12128039 | Expires: Feb 10, 2032
Patent 12128039 | Expires: Feb 10, 2032
Patent 12128039 | Expires: Feb 10, 2032
Patent 11098015 | Expires: Jan 15, 2030
Patent 11098015 | Expires: Jan 15, 2030
Patent 10039757 | Expires: Jul 18, 2031
Patent 11098015 | Expires: Jan 15, 2030
Patent 11098015 | Expires: Jan 15, 2030
Patent 11098015 | Expires: Jan 15, 2030
Patent 11098015 | Expires: Jan 15, 2030
Patent 8877776 | Expires: Oct 8, 2030
Patent 9724342 | Expires: Jul 9, 2033
Patent 11298349 | Expires: Feb 10, 2032
Patent 11091440 | Expires: Jan 15, 2030
Patent 11091439 | Expires: Jan 15, 2030
Patent 7579473 | Expires: Aug 14, 2026

EXCLUSIVITY:
Code: ODE-227 | Date: Jan 14, 2026
Code: ODE-375 | Date: Sep 17, 2028